FAERS Safety Report 26125736 (Version 1)
Quarter: 2025Q4

REPORT INFORMATION
  Report Type: Spontaneous
  Country: US (occurrence: US)
  Receive Date: 20251205
  Receipt Date: 20251205
  Transmission Date: 20260117
  Serious: Yes (Hospitalization, Other)
  Sender: NORDIC PHARMA
  Company Number: US-NORDIC PHARMA, INC-2025US006594

PATIENT

DRUGS (5)
  1. SUCCINYLCHOLINE [Suspect]
     Active Substance: SUCCINYLCHOLINE
     Indication: Induction of anaesthesia
     Dosage: UNK
  2. LIDOCAINE [Suspect]
     Active Substance: LIDOCAINE
     Indication: Induction of anaesthesia
     Dosage: UNK
  3. PROPOFOL [Suspect]
     Active Substance: PROPOFOL
     Indication: Induction of anaesthesia
     Dosage: UNK
  4. METHADONE [Suspect]
     Active Substance: METHADONE HYDROCHLORIDE
     Indication: Induction of anaesthesia
     Dosage: UNK
  5. KETAMINE [Suspect]
     Active Substance: KETAMINE
     Indication: Induction of anaesthesia
     Dosage: UNK

REACTIONS (4)
  - Pulmonary embolism [Unknown]
  - Pulseless electrical activity [Unknown]
  - Right atrial dilatation [Unknown]
  - Right ventricular dilatation [Recovered/Resolved]
